FAERS Safety Report 6832919-6 (Version None)
Quarter: 2010Q3

REPORT INFORMATION
  Report Type: 
  Country: None (occurrence: None)
  Receive Date: 20100712
  Receipt Date: 20070315
  Transmission Date: 20110219
  Serious: No
  Sender: FDA-Public Use
  Company Number: US-PFIZER INC-2007022675

PATIENT
  Age: 35 Year
  Sex: Female
  Weight: 68.04 kg

DRUGS (3)
  1. CHANTIX [Suspect]
     Indication: SMOKING CESSATION THERAPY
     Dates: start: 20070109
  2. XANAX [Concomitant]
  3. ESTROSTEP FE [Concomitant]

REACTIONS (2)
  - DYSMENORRHOEA [None]
  - MENSTRUAL DISORDER [None]
